FAERS Safety Report 20103492 (Version 1)
Quarter: 2021Q4

REPORT INFORMATION
  Report Type: Spontaneous
  Country: US (occurrence: None)
  Receive Date: 20211123
  Receipt Date: 20211123
  Transmission Date: 20220303
  Serious: Yes (Hospitalization)
  Sender: FDA-Public Use
  Company Number: None

PATIENT
  Age: 68 Year
  Sex: Male
  Weight: 128.7 kg

DRUGS (11)
  1. CASIRIVIMAB\IMDEVIMAB [Suspect]
     Active Substance: CASIRIVIMAB\IMDEVIMAB
     Indication: COVID-19
     Dosage: FREQUENCY : ONCE;?
     Route: 042
     Dates: start: 20211116, end: 20211116
  2. ACETAMINOPHEN [Concomitant]
     Active Substance: ACETAMINOPHEN
     Dates: start: 20211115, end: 20211118
  3. HYDROCODONE [Concomitant]
     Active Substance: HYDROCODONE
  4. MELOXICAM [Concomitant]
     Active Substance: MELOXICAM
  5. WARFARIN [Concomitant]
     Active Substance: WARFARIN
     Dates: start: 20200411
  6. GUAIFENESIN [Concomitant]
     Active Substance: GUAIFENESIN
     Dates: start: 20211112, end: 20211118
  7. BENZOCAINE-MENTHOL [Concomitant]
     Dates: start: 20211112, end: 20211118
  8. ALLOPURINOL [Concomitant]
     Active Substance: ALLOPURINOL
     Dates: start: 20211105, end: 20211118
  9. CYANOCOBALAMIN [Concomitant]
     Active Substance: CYANOCOBALAMIN
     Dates: start: 20211105, end: 20211118
  10. OXYCODONE [Concomitant]
     Active Substance: OXYCODONE
     Dates: start: 20211106, end: 20211110
  11. METFORMIN [Concomitant]
     Active Substance: METFORMIN HYDROCHLORIDE
     Dates: start: 20170603

REACTIONS (6)
  - Chills [None]
  - Cough [None]
  - Oxygen saturation decreased [None]
  - Body temperature increased [None]
  - Heart rate increased [None]
  - Infusion related reaction [None]

NARRATIVE: CASE EVENT DATE: 20211116
